FAERS Safety Report 9469583 (Version 2)
Quarter: 2013Q4

REPORT INFORMATION
  Report Type: Spontaneous
  Country: FR (occurrence: FR)
  Receive Date: 20130822
  Receipt Date: 20131104
  Transmission Date: 20140711
  Serious: Yes (Other)
  Sender: FDA-Public Use
  Company Number: FR-ROCHE-1262576

PATIENT
  Age: 86 Year
  Sex: Male

DRUGS (4)
  1. VEMURAFENIB [Suspect]
     Indication: METASTATIC MALIGNANT MELANOMA
     Dosage: DOSE REDUCED TO 480 MG PER DAY (ONE QUARTER THE ORIGINAL DOSE OF 1920 MG PER DAY)
     Route: 065
  2. FLUINDIONE [Concomitant]
  3. AMLODIPINE [Concomitant]
  4. ALFUZOSINE [Concomitant]

REACTIONS (2)
  - Rash generalised [Recovering/Resolving]
  - Renal failure acute [Recovering/Resolving]
